FAERS Safety Report 19629589 (Version 1)
Quarter: 2021Q3

REPORT INFORMATION
  Report Type: Spontaneous
  Country: FR (occurrence: FR)
  Receive Date: 20210728
  Receipt Date: 20210728
  Transmission Date: 20211014
  Serious: Yes (Death, Other)
  Sender: FDA-Public Use
  Company Number: FR-ALXN-A202108420

PATIENT
  Age: 46 Year
  Sex: Male

DRUGS (1)
  1. SOLIRIS [Suspect]
     Active Substance: ECULIZUMAB
     Indication: PAROXYSMAL NOCTURNAL HAEMOGLOBINURIA
     Dosage: 600 MG, UNK
     Route: 065

REACTIONS (4)
  - Coronary artery stenosis [Unknown]
  - Cardiac arrest [Fatal]
  - Myocardial ischaemia [Unknown]
  - Escherichia test positive [Unknown]
